FAERS Safety Report 19510669 (Version 1)
Quarter: 2021Q3

REPORT INFORMATION
  Report Type: Report from Study
  Country: AT (occurrence: AT)
  Receive Date: 20210709
  Receipt Date: 20210709
  Transmission Date: 20211014
  Serious: Yes (Hospitalization, Other)
  Sender: FDA-Public Use
  Company Number: AT-AMGEN-AUTNI2021102888

PATIENT

DRUGS (46)
  1. TRASTUZUMAB. [Suspect]
     Active Substance: TRASTUZUMAB
     Dosage: 378 MG, EVERY 3 WEEKS; LAST DOSE WAS RECEIVED ON 09/JAN/2019.
     Route: 042
     Dates: start: 20181214, end: 20190109
  2. NERATINIB [Suspect]
     Active Substance: NERATINIB
     Dosage: 1440 MG, QD
     Route: 048
     Dates: start: 20200108, end: 20200118
  3. PERTUZUMAB. [Suspect]
     Active Substance: PERTUZUMAB
     Dosage: 840 MG EVERY 3 WEEK; MOST RECENT DOSE PRIOR TO THE EVENT: 28/MAR/2018, 14/DEC/2018
     Route: 042
     Dates: start: 20180328
  4. TAXOL [Suspect]
     Active Substance: PACLITAXEL
     Indication: HER2 POSITIVE BREAST CANCER
     Dosage: WEEKLY, RECENT DOSE ON 09/APR/2018
     Route: 042
     Dates: start: 20180328, end: 20180409
  5. NAVELBINE [Suspect]
     Active Substance: VINORELBINE TARTRATE
     Indication: HER2 POSITIVE BREAST CANCER
  6. BEPANTHEN [DEXPANTHENOL] [Concomitant]
     Active Substance: DEXPANTHENOL
     Indication: ONYCHOLYSIS
     Dosage: UNK
     Route: 065
     Dates: start: 20180619
  7. TRASTUZUMAB. [Suspect]
     Active Substance: TRASTUZUMAB
     Dosage: 600 MG EVERY 3 WEEKS
     Route: 042
     Dates: start: 20191011, end: 20191011
  8. PERTUZUMAB. [Suspect]
     Active Substance: PERTUZUMAB
     Dosage: 420 MG EVERY 3 WEEKS
     Route: 042
     Dates: start: 20180423, end: 20180423
  9. PERTUZUMAB. [Suspect]
     Active Substance: PERTUZUMAB
     Dosage: SOLUTION FOR INFUSION
     Route: 042
  10. TRASTUZUMAB. [Suspect]
     Active Substance: TRASTUZUMAB
     Indication: HER2 POSITIVE BREAST CANCER
     Dosage: 378 MG EVERY 3 WEEKS
     Route: 041
     Dates: start: 20181214, end: 20190109
  11. TRASTUZUMAB. [Suspect]
     Active Substance: TRASTUZUMAB
     Dosage: 384 MG EVERY 3 WEEKS
     Route: 042
     Dates: start: 20180515, end: 20180515
  12. TRASTUZUMAB. [Suspect]
     Active Substance: TRASTUZUMAB
     Dosage: 378 MG EVERY 3 WEEKS; MOST RECENT DOSE WAS RECEIVED ON 09 JAN 2019
     Route: 041
     Dates: start: 20181123
  13. TRASTUZUMAB. [Suspect]
     Active Substance: TRASTUZUMAB
     Dosage: 600 MG, EVERY 3 WEEK; MOST RECENT DOSE PRIOR TO THE EVENT: 26 JUN 2018
     Route: 041
     Dates: start: 20180328, end: 20180328
  14. METHOTREXATE. [Suspect]
     Active Substance: METHOTREXATE
     Indication: HER2 POSITIVE BREAST CANCER
     Dosage: 2.5 MG, EVERY 0.5 WEEK
     Route: 048
     Dates: start: 20200219, end: 20200309
  15. BEPANTHENE [Concomitant]
     Active Substance: DEXPANTHENOL
     Dosage: UNK
     Dates: start: 20180725
  16. TRASTUZUMAB. [Suspect]
     Active Substance: TRASTUZUMAB
     Dosage: 378 MG EVERY 3 WEEKS
     Route: 042
     Dates: start: 20181102, end: 20181123
  17. TRASTUZUMAB EMTANSINE [Suspect]
     Active Substance: ADO-TRASTUZUMAB EMTANSINE
     Dosage: SOLUTION FOR INFUSION
     Route: 042
  18. PERTUZUMAB. [Suspect]
     Active Substance: PERTUZUMAB
     Indication: PRODUCT USED FOR UNKNOWN INDICATION
     Dosage: 420 MG EVERY 3 WEEKS
     Route: 042
     Dates: start: 20181214, end: 20190109
  19. PACLITAXEL ALBUMIN [Suspect]
     Active Substance: PACLITAXEL
     Indication: HER2 POSITIVE BREAST CANCER
     Dosage: 177.17 MG, 1/WEEK; MOST RECENT DOSE PRIOR TO THE EVENT: 08/MAY/2018, 16/JAN/2019,
     Route: 042
     Dates: start: 20180416
  20. PACLITAXEL ALBUMIN [Suspect]
     Active Substance: PACLITAXEL
     Dosage: 177.17 MG, DOSE ON 08/MAY/2018 MOST RECENT DOSE PRIOR TO THE EVENT: 16/JAN/2019
     Route: 042
     Dates: start: 20180416
  21. XGEVA [Concomitant]
     Active Substance: DENOSUMAB
     Dosage: UNK
     Dates: start: 20191219
  22. TRASTUZUMAB. [Suspect]
     Active Substance: TRASTUZUMAB
     Dosage: 372 MG EVERY 3 WEEKS
     Route: 041
     Dates: start: 20180626, end: 20181010
  23. TRASTUZUMAB EMTANSINE [Suspect]
     Active Substance: ADO-TRASTUZUMAB EMTANSINE
     Indication: HER2 POSITIVE BREAST CANCER
     Dosage: 230.4 MG; EVERY 3 WEEK; DOSE ON 17/MAY/2019, MOST RECENT DOSE PRIOR TO THE EVENT: 28/JUN/2019
     Route: 042
     Dates: start: 20190131, end: 20190517
  24. TRASTUZUMAB EMTANSINE [Suspect]
     Active Substance: ADO-TRASTUZUMAB EMTANSINE
     Dosage: 230.4 MG; EVERY 3 WEEK; DOSE ON 17/MAY/2019
     Route: 042
     Dates: start: 20190131
  25. TAXOL [Suspect]
     Active Substance: PACLITAXEL
     Indication: BREAST CANCER
  26. CYCLOPHOSPHAMIDE. [Suspect]
     Active Substance: CYCLOPHOSPHAMIDE
     Indication: HER2 POSITIVE BREAST CANCER
     Dosage: 50 MG, QD
     Route: 048
     Dates: start: 20200219, end: 20200309
  27. VINORELBINE TARTRATE. [Suspect]
     Active Substance: VINORELBINE TARTRATE
     Indication: HER2 POSITIVE BREAST CANCER
     Dosage: 50 MICROGRAM; RECENT DOSE: 28/OCT/2019
     Route: 048
     Dates: start: 20191011
  28. KYTRIL [Concomitant]
     Active Substance: GRANISETRON HYDROCHLORIDE
     Indication: PRODUCT USED FOR UNKNOWN INDICATION
     Dosage: ONGOING = NOT CHECKED
     Route: 065
     Dates: start: 20190628, end: 20190830
  29. CYCLOPHOSPHAMIDE. [Suspect]
     Active Substance: CYCLOPHOSPHAMIDE
     Dosage: 2.5 MG, EVERY 0.5 WEEK
     Route: 048
  30. VINORELBINE [Suspect]
     Active Substance: VINORELBINE TARTRATE
     Indication: HER2 POSITIVE BREAST CANCER
     Dosage: 50 MG; RECENT DOSE: 28/OCT/2019
     Route: 048
     Dates: start: 20191011, end: 20191025
  31. PANTOLOC [Concomitant]
     Active Substance: PANTOPRAZOLE SODIUM
     Indication: PRODUCT USED FOR UNKNOWN INDICATION
     Dosage: UNK
     Route: 065
     Dates: start: 20191011
  32. ENTEROBENE [Concomitant]
     Dosage: UNK
     Dates: start: 20200108
  33. BEPANTHEN EYE [Concomitant]
     Active Substance: DEXPANTHENOL\HYALURONATE SODIUM
     Indication: CONJUNCTIVITIS
     Dosage: UNK
     Route: 065
     Dates: start: 20180619
  34. TRASTUZUMAB. [Suspect]
     Active Substance: TRASTUZUMAB
     Dosage: 378 MG EVERY 3 WEEKS
     Route: 041
     Dates: start: 20181214, end: 20190109
  35. TRASTUZUMAB. [Suspect]
     Active Substance: TRASTUZUMAB
     Dosage: 408 MG EVERY 3 WEEKS
     Route: 042
     Dates: start: 20180423, end: 20180423
  36. TRASTUZUMAB. [Suspect]
     Active Substance: TRASTUZUMAB
     Dosage: 378 MG, EVERY 3 WEEKS; MOST RECENT DOSE WAS RECEIVED ON 09/JAN/2019.
     Route: 042
     Dates: start: 20181123, end: 20181123
  37. TRASTUZUMAB. [Suspect]
     Active Substance: TRASTUZUMAB
     Dosage: 600 MG, EVERY 3 WEEK; MOST RECENT DOSE PRIOR TO THE EVENT: 11 OCT 2019, 28 MAR 2018
     Route: 041
     Dates: start: 20180328
  38. NERATINIB [Suspect]
     Active Substance: NERATINIB
     Dosage: UNK
     Route: 048
  39. ABRAXANE [Suspect]
     Active Substance: PACLITAXEL
     Indication: BREAST CANCER
     Dosage: 177.17 MG, 1/WEEK; MOST RECENT DOSE PRIOR TO THE EVENT: 08/MAY/2018, 16/JAN/2019,
     Route: 042
     Dates: start: 20180416
  40. ABRAXANE [Suspect]
     Active Substance: PACLITAXEL
     Indication: HER2 POSITIVE BREAST CANCER
     Dosage: 177.17 MG; DOSE ON 08/MAY/2018 DOSE ON 08/MAY/2018MOST RECENT DOSE PRIOR TO THE EVENT: 16/JAN/2019
     Route: 042
     Dates: start: 20180416
  41. VINORELBINE [Suspect]
     Active Substance: VINORELBINE TARTRATE
     Dosage: 50 MG; RECENT DOSE: 28/OCT/2019
     Route: 048
     Dates: start: 20191011
  42. CAL D VITA [Concomitant]
     Dosage: ONGOING = CHECKED
     Dates: start: 20190425
  43. NERATINIB [Suspect]
     Active Substance: NERATINIB
     Indication: HER2 POSITIVE BREAST CANCER
     Dosage: 1440 MG, QD
     Route: 048
     Dates: start: 20200119, end: 20200129
  44. PERTUZUMAB. [Suspect]
     Active Substance: PERTUZUMAB
     Dosage: 840 MG EVERY 3 WEEK; MOST RECENT DOSE PRIOR TO THE EVENT: 14/DEC/2018
     Route: 042
     Dates: start: 20180328, end: 20180328
  45. NAVELBINE [Suspect]
     Active Substance: VINORELBINE TARTRATE
     Indication: BREAST CANCER
     Dosage: 50 UG; RECENT DOSE: 28/OCT/2019
     Route: 048
     Dates: start: 20191011
  46. OCTENISEPT [OCTENIDINE HYDROCHLORIDE;PHENOXYETHANOL] [Concomitant]
     Dosage: UNK
     Route: 065
     Dates: start: 20180725

REACTIONS (9)
  - Breast cancer metastatic [Recovering/Resolving]
  - Febrile neutropenia [Recovered/Resolved]
  - Off label use [Unknown]
  - Skin lesion [Recovering/Resolving]
  - Stomatitis [Recovered/Resolved]
  - Pain of skin [Recovered/Resolved]
  - Overdose [Unknown]
  - Intentional product use issue [Unknown]
  - Tumour pain [Recovered/Resolved]

NARRATIVE: CASE EVENT DATE: 20190920
